FAERS Safety Report 8967848 (Version 1)
Quarter: 2012Q4

REPORT INFORMATION
  Report Type: 
  Country: CH (occurrence: CH)
  Receive Date: 20121217
  Receipt Date: 20121217
  Transmission Date: 20130627
  Serious: Yes (Hospitalization)
  Sender: FDA-Public Use
  Company Number: CH-009507513-1212CHE005554

PATIENT
  Age: 57 Year
  Sex: Female

DRUGS (3)
  1. REMERON [Suspect]
     Dosage: 15 mg, Once, 16 units, total dose: 240 mg
     Route: 048
     Dates: start: 20120821, end: 20120821
  2. LORAZEPAM [Concomitant]
     Dosage: 4 mg, UNK
     Route: 048
     Dates: start: 20120821, end: 20120821
  3. ALCOHOL [Suspect]
     Dosage: 1 bottle red wine
     Route: 048
     Dates: start: 20120821, end: 20120821

REACTIONS (6)
  - Oxygen saturation decreased [Recovered/Resolved with Sequelae]
  - Overdose [Recovered/Resolved with Sequelae]
  - Dysarthria [Recovered/Resolved with Sequelae]
  - Suicide attempt [Recovered/Resolved with Sequelae]
  - Somnolence [Recovered/Resolved with Sequelae]
  - Agitation [Recovered/Resolved with Sequelae]
